FAERS Safety Report 11184674 (Version 1)
Quarter: 2015Q2

REPORT INFORMATION
  Report Type: Spontaneous
  Country: DE (occurrence: DE)
  Receive Date: 20150612
  Receipt Date: 20150612
  Transmission Date: 20150821
  Serious: Yes (Other)
  Sender: FDA-Public Use
  Company Number: DE-TEVA-569107GER

PATIENT
  Age: 17 Month
  Sex: Male

DRUGS (1)
  1. PROPRANOLOL [Suspect]
     Active Substance: PROPRANOLOL\PROPRANOLOL HYDROCHLORIDE
     Dosage: 4 MG/KG BODY WEIGHT
     Route: 048

REACTIONS (6)
  - Toxicity to various agents [Recovered/Resolved]
  - Accidental exposure to product by child [Recovered/Resolved]
  - Chills [Recovered/Resolved]
  - Accidental poisoning [Recovered/Resolved]
  - Screaming [Recovered/Resolved]
  - Tachycardia [Recovered/Resolved]
